FAERS Safety Report 16633693 (Version 1)
Quarter: 2019Q3

REPORT INFORMATION
  Report Type: Spontaneous
  Country: US (occurrence: US)
  Receive Date: 20190725
  Receipt Date: 20190725
  Transmission Date: 20191004
  Serious: Yes (Other)
  Sender: FDA-Public Use
  Company Number: None

PATIENT
  Age: 68 Year
  Sex: Male
  Weight: 69.85 kg

DRUGS (1)
  1. JEVTANA [Suspect]
     Active Substance: CABAZITAXEL
     Indication: PROSTATE CANCER
     Dosage: ?          OTHER FREQUENCY:Q3 WEEKS;?
     Route: 042
     Dates: start: 20190312

REACTIONS (1)
  - Disease progression [None]

NARRATIVE: CASE EVENT DATE: 20190723
